FAERS Safety Report 18123697 (Version 2)
Quarter: 2022Q1

REPORT INFORMATION
  Report Type: Spontaneous
  Country: US (occurrence: US)
  Receive Date: 20200807
  Receipt Date: 20220301
  Transmission Date: 20220423
  Serious: No
  Sender: FDA-Public Use
  Company Number: US-AEGERION PHARMACEUTICAL, INC-AEGR004887

PATIENT
  Sex: Female
  Weight: 50.068 kg

DRUGS (6)
  1. MYALEPT [Suspect]
     Active Substance: METRELEPTIN
     Indication: Lipodystrophy acquired
     Dosage: 3.75 MG (0,75ML), BID
     Route: 058
  2. MYALEPT [Suspect]
     Active Substance: METRELEPTIN
     Dosage: 5 MILLIGRAM, BID
     Route: 058
     Dates: start: 201703
  3. MYALEPT [Suspect]
     Active Substance: METRELEPTIN
     Dosage: 3.75 MILLIGRAM, QD
     Route: 058
  4. MYALEPT [Suspect]
     Active Substance: METRELEPTIN
     Dosage: 5 MILLIGRAM, BID
     Route: 058
  5. BACTERIOSTATIC WATER [Concomitant]
     Active Substance: WATER
     Indication: Product used for unknown indication
  6. INSULIN NOS [Concomitant]
     Active Substance: INSULIN NOS
     Indication: Product used for unknown indication

REACTIONS (8)
  - Product dose omission issue [Unknown]
  - Hyperglycaemia [Recovering/Resolving]
  - COVID-19 [Recovered/Resolved]
  - Rash erythematous [Unknown]
  - Pruritus [Unknown]
  - Weight increased [Not Recovered/Not Resolved]
  - Urticaria [Unknown]
  - Diet noncompliance [Unknown]

NARRATIVE: CASE EVENT DATE: 20200101
